FAERS Safety Report 6977011-5 (Version None)
Quarter: 2010Q3

REPORT INFORMATION
  Report Type: 
  Country: None (occurrence: None)
  Receive Date: 20100910
  Receipt Date: 20100827
  Transmission Date: 20110219
  Serious: Yes (Other)
  Sender: FDA-Public Use
  Company Number: US-ROCHE-725345

PATIENT

DRUGS (1)
  1. NAPROXEN [Suspect]
     Indication: ANTIINFLAMMATORY THERAPY
     Dosage: DRUG: ENTERIC-COATED NAPROXEN, DAILY DOSE 500 MGBID, THERAPY DURATION 6 MONTH
     Route: 048

REACTIONS (1)
  - NON-CARDIAC CHEST PAIN [None]
